FAERS Safety Report 18902128 (Version 4)
Quarter: 2021Q3

REPORT INFORMATION
  Report Type: Other
  Country: CA (occurrence: CA)
  Receive Date: 20210217
  Receipt Date: 20210728
  Transmission Date: 20211014
  Serious: Yes (Other)
  Sender: FDA-Public Use
  Company Number: CA-ROCHE-2767492

PATIENT
  Age: 78 Year
  Sex: Male

DRUGS (4)
  1. PREDNISONE. [Suspect]
     Active Substance: PREDNISONE
     Indication: PYODERMA GANGRENOSUM
     Route: 065
     Dates: start: 201804, end: 201811
  2. STELARA [Suspect]
     Active Substance: USTEKINUMAB
     Indication: PYODERMA GANGRENOSUM
     Route: 058
     Dates: start: 201804, end: 201811
  3. MYCOPHENOLATE MOFETIL. [Suspect]
     Active Substance: MYCOPHENOLATE MOFETIL
     Indication: PYODERMA GANGRENOSUM
     Route: 065
  4. CICLOSPORIN [Suspect]
     Active Substance: CYCLOSPORINE
     Indication: PYODERMA GANGRENOSUM
     Route: 065

REACTIONS (5)
  - Cutaneous sporotrichosis [Recovering/Resolving]
  - Off label use [Unknown]
  - Hypertension [Recovering/Resolving]
  - Peripheral swelling [Recovering/Resolving]
  - Gastrointestinal disorder [Recovering/Resolving]
